FAERS Safety Report 12860650 (Version 1)
Quarter: 2016Q4

REPORT INFORMATION
  Report Type: Spontaneous
  Country: US (occurrence: US)
  Receive Date: 20161019
  Receipt Date: 20161019
  Transmission Date: 20170207
  Serious: No
  Sender: FDA-Public Use
  Company Number: US-TEVA-605220USA

PATIENT
  Sex: Female
  Weight: 61.74 kg

DRUGS (1)
  1. AMOXICILLIN W/CLAVULANIC ACID [Suspect]
     Active Substance: AMOXICILLIN\CLAVULANIC ACID
     Dosage: 400 MG/57 MG
     Route: 065

REACTIONS (3)
  - Pain in jaw [Unknown]
  - Tooth fracture [Unknown]
  - Hypophagia [Unknown]
